FAERS Safety Report 5738313-3 (Version None)
Quarter: 2008Q2

REPORT INFORMATION
  Report Type: 
  Country: None (occurrence: None)
  Receive Date: 20080513
  Receipt Date: 20080506
  Transmission Date: 20081010
  Serious: Yes (Life-Threatening, Hospitalization, Other)
  Sender: FDA-Public Use
  Company Number: 163-21880-07110761

PATIENT
  Age: 74 Year
  Sex: Male

DRUGS (8)
  1. REVLIMID [Suspect]
     Indication: CYTOGENETIC ANALYSIS ABNORMAL
     Dosage: 10 MG, DAILY, ORAL; 15 MG, DAILY, ORAL; 25 MG, DAILY, ORAL
     Route: 048
     Dates: start: 20061006, end: 20061115
  2. REVLIMID [Suspect]
     Indication: MULTIPLE MYELOMA
     Dosage: 10 MG, DAILY, ORAL; 15 MG, DAILY, ORAL; 25 MG, DAILY, ORAL
     Route: 048
     Dates: start: 20061006, end: 20061115
  3. REVLIMID [Suspect]
     Indication: CYTOGENETIC ANALYSIS ABNORMAL
     Dosage: 10 MG, DAILY, ORAL; 15 MG, DAILY, ORAL; 25 MG, DAILY, ORAL
     Route: 048
     Dates: start: 20061122, end: 20070404
  4. REVLIMID [Suspect]
     Indication: MULTIPLE MYELOMA
     Dosage: 10 MG, DAILY, ORAL; 15 MG, DAILY, ORAL; 25 MG, DAILY, ORAL
     Route: 048
     Dates: start: 20061122, end: 20070404
  5. REVLIMID [Suspect]
     Indication: CYTOGENETIC ANALYSIS ABNORMAL
     Dosage: 10 MG, DAILY, ORAL; 15 MG, DAILY, ORAL; 25 MG, DAILY, ORAL
     Route: 048
     Dates: start: 20070430, end: 20070906
  6. REVLIMID [Suspect]
     Indication: MULTIPLE MYELOMA
     Dosage: 10 MG, DAILY, ORAL; 15 MG, DAILY, ORAL; 25 MG, DAILY, ORAL
     Route: 048
     Dates: start: 20070430, end: 20070906
  7. LOVENOX [Suspect]
     Indication: DRUG USE FOR UNKNOWN INDICATION
  8. WARFARIN SODIUM [Concomitant]

REACTIONS (8)
  - BONE MARROW FAILURE [None]
  - DIALYSIS [None]
  - EPISTAXIS [None]
  - GASTROINTESTINAL HAEMORRHAGE [None]
  - MALIGNANT NEOPLASM PROGRESSION [None]
  - MULTIPLE MYELOMA [None]
  - RENAL FAILURE [None]
  - RESPIRATORY FAILURE [None]
